FAERS Safety Report 5595097-X (Version None)
Quarter: 2008Q1

REPORT INFORMATION
  Report Type: 
  Country: None (occurrence: None)
  Receive Date: 20080117
  Receipt Date: 20071030
  Transmission Date: 20080703
  Serious: Yes (Death, Hospitalization)
  Sender: FDA-Public Use
  Company Number: LB-SANOFI-SYNTHELABO-A01200712230

PATIENT
  Age: 58 Year
  Sex: Male
  Weight: 90 kg

DRUGS (4)
  1. LOVENOX [Concomitant]
     Indication: THROMBOSIS
     Dosage: 80 MG
     Route: 042
  2. ASPEGIC 1000 [Concomitant]
     Indication: ACUTE CORONARY SYNDROME
     Dosage: 250 MG
     Route: 042
  3. CORDARONE [Concomitant]
     Indication: ARRHYTHMIA
     Dosage: 200 MG
     Route: 042
  4. PLAVIX [Suspect]
     Indication: ACUTE CORONARY SYNDROME
     Dosage: 300 MG
     Route: 048

REACTIONS (1)
  - CARDIOGENIC SHOCK [None]
